FAERS Safety Report 18622663 (Version 2)
Quarter: 2021Q1

REPORT INFORMATION
  Report Type: Spontaneous
  Country: NL (occurrence: NL)
  Receive Date: 20201216
  Receipt Date: 20210102
  Transmission Date: 20210419
  Serious: Yes (Other)
  Sender: FDA-Public Use
  Company Number: NL-ACCORD-211099

PATIENT
  Sex: Male
  Weight: 108 kg

DRUGS (3)
  1. TAMSULOSIN/TAMSULOSIN HYDROCHLORIDE [Concomitant]
     Active Substance: TAMSULOSIN HYDROCHLORIDE
     Dosage: STRENGTH: 0.4 MG,
  2. TAMSULOSIN/TAMSULOSIN HYDROCHLORIDE [Concomitant]
     Active Substance: TAMSULOSIN HYDROCHLORIDE
     Dosage: STRENGTH: 0.4 MG, 1X PER DAY
  3. FINASTERIDE. [Suspect]
     Active Substance: FINASTERIDE
     Indication: BENIGN PROSTATIC HYPERPLASIA
     Dosage: 1X PER DAY, STRENGTH: 5 MG
     Dates: start: 20180130, end: 20201103

REACTIONS (7)
  - Depressed mood [Recovering/Resolving]
  - Suicide attempt [Unknown]
  - Depression [Recovering/Resolving]
  - Withdrawal syndrome [Not Recovered/Not Resolved]
  - Erectile dysfunction [Not Recovered/Not Resolved]
  - Peyronie^s disease [Recovering/Resolving]
  - Loss of libido [Recovering/Resolving]
